FAERS Safety Report 11869118 (Version 1)
Quarter: 2015Q4

REPORT INFORMATION
  Report Type: Spontaneous
  Country: ES (occurrence: ES)
  Receive Date: 20151226
  Receipt Date: 20151226
  Transmission Date: 20160305
  Serious: Yes (Hospitalization, Other)
  Sender: FDA-Public Use
  Company Number: ES-ZYDUS-009842

PATIENT
  Age: 74 Year
  Sex: Female

DRUGS (4)
  1. LEVOTHYROXINE/LEVOTHYROXINE SODIUM [Concomitant]
     Indication: PRODUCT USED FOR UNKNOWN INDICATION
     Dosage: REDUCE THE DOSE OF DRUG FROM 100 TO 75MCG FOR LOW TSH.
     Route: 065
  2. AMLODIPINE [Suspect]
     Active Substance: AMLODIPINE BESYLATE
     Indication: PRODUCT USED FOR UNKNOWN INDICATION
     Route: 065
  3. TORASEMIDE/TORASEMIDE SODIUM [Concomitant]
     Indication: PRODUCT USED FOR UNKNOWN INDICATION
     Route: 065
  4. VALSARTAN. [Suspect]
     Active Substance: VALSARTAN
     Indication: PRODUCT USED FOR UNKNOWN INDICATION
     Dosage: INCREASING VALSARTAN TO 40 MG DAILY
     Route: 065

REACTIONS (9)
  - Allodynia [Unknown]
  - Amyotrophy [Unknown]
  - Dysaesthesia [Unknown]
  - Oedema [Recovered/Resolved]
  - Erythema [Recovering/Resolving]
  - Depression [Recovering/Resolving]
  - Complex regional pain syndrome [Unknown]
  - Pain [Not Recovered/Not Resolved]
  - Cellulitis [Unknown]
